FAERS Safety Report 16395535 (Version 1)
Quarter: 2019Q2

REPORT INFORMATION
  Report Type: Spontaneous
  Country: JP (occurrence: JP)
  Receive Date: 20190605
  Receipt Date: 20190605
  Transmission Date: 20190711
  Serious: Yes (Other)
  Sender: FDA-Public Use
  Company Number: JP-DSJP-DSJ-2019-119650

PATIENT

DRUGS (1)
  1. LIXIANA OD TABLETS 30MG [Suspect]
     Active Substance: EDOXABAN TOSYLATE
     Indication: DEEP VEIN THROMBOSIS
     Dosage: 15 MG, QD
     Route: 048
     Dates: start: 20190517, end: 20190528

REACTIONS (2)
  - Prescribed underdose [Unknown]
  - Renal impairment [Unknown]

NARRATIVE: CASE EVENT DATE: 20190517
